FAERS Safety Report 11302701 (Version 1)
Quarter: 2015Q3

REPORT INFORMATION
  Report Type: Spontaneous
  Country: US (occurrence: US)
  Receive Date: 20150723
  Receipt Date: 20150723
  Transmission Date: 20151125
  Serious: No
  Sender: FDA-Public Use
  Company Number: US-BAYER-2015-381661

PATIENT
  Sex: Female

DRUGS (1)
  1. SKYLA [Suspect]
     Active Substance: LEVONORGESTREL
     Indication: CONTRACEPTION
     Dosage: UNK
     Dates: start: 201502

REACTIONS (3)
  - Vaginal disorder [None]
  - Dyspareunia [None]
  - Coital bleeding [Not Recovered/Not Resolved]

NARRATIVE: CASE EVENT DATE: 20150716
